FAERS Safety Report 8547464-X (Version None)
Quarter: 2012Q3

REPORT INFORMATION
  Report Type: 
  Country: None (occurrence: None)
  Receive Date: 20120727
  Receipt Date: 20120419
  Transmission Date: 20120928
  Serious: No
  Sender: FDA-Public Use
  Company Number: US-ASTRAZENECA-2012SE25709

PATIENT
  Age: 55 Year
  Sex: Female
  Weight: 89.8 kg

DRUGS (6)
  1. SEROQUEL [Suspect]
     Indication: MANIA
     Route: 048
     Dates: start: 20090101
  2. RESTORIL [Concomitant]
  3. SEROQUEL [Suspect]
     Indication: BIPOLAR DISORDER
     Route: 048
     Dates: start: 20090101
  4. CLONAZEPAM [Concomitant]
  5. KLONOPIN [Concomitant]
  6. SEROQUEL [Suspect]
     Indication: DEPRESSION
     Route: 048
     Dates: start: 20090101

REACTIONS (4)
  - INSOMNIA [None]
  - CRYING [None]
  - INTENTIONAL DRUG MISUSE [None]
  - MEMORY IMPAIRMENT [None]
